FAERS Safety Report 13740777 (Version 4)
Quarter: 2018Q4

REPORT INFORMATION
  Report Type: Spontaneous
  Country: US (occurrence: US)
  Receive Date: 20170711
  Receipt Date: 20181231
  Transmission Date: 20190204
  Serious: Yes (Other)
  Sender: FDA-Public Use
  Company Number: US-CELGENEUS-USA-20170701892

PATIENT
  Age: 75 Year
  Sex: Female
  Weight: 54 kg

DRUGS (12)
  1. ELIQUIS [Concomitant]
     Active Substance: APIXABAN
     Indication: PRODUCT USED FOR UNKNOWN INDICATION
     Route: 065
  2. REVLIMID [Suspect]
     Active Substance: LENALIDOMIDE
     Dosage: 2.5 MILLIGRAM
     Route: 048
     Dates: start: 201612
  3. REVLIMID [Suspect]
     Active Substance: LENALIDOMIDE
     Dosage: 2.5 MILLIGRAM
     Route: 048
     Dates: start: 20170113
  4. REVLIMID [Suspect]
     Active Substance: LENALIDOMIDE
     Dosage: 2.5 MILLIGRAM
     Route: 048
     Dates: start: 20170629
  5. VITAMIN B3 [Concomitant]
     Active Substance: NIACIN
     Indication: PRODUCT USED FOR UNKNOWN INDICATION
     Route: 065
  6. REVLIMID [Suspect]
     Active Substance: LENALIDOMIDE
     Indication: 5Q MINUS SYNDROME
     Dosage: 10 MILLIGRAM
     Route: 048
     Dates: start: 201409
  7. REVLIMID [Suspect]
     Active Substance: LENALIDOMIDE
     Dosage: 2.5 MILLIGRAM
     Route: 048
     Dates: start: 201707
  8. VITAMIN B12 [Concomitant]
     Active Substance: CYANOCOBALAMIN
     Indication: PRODUCT USED FOR UNKNOWN INDICATION
     Route: 065
  9. CALCIUM [Concomitant]
     Active Substance: CALCIUM
     Indication: PRODUCT USED FOR UNKNOWN INDICATION
     Route: 065
  10. CLINDAMYCIN. [Concomitant]
     Active Substance: CLINDAMYCIN
     Indication: INFECTION PROPHYLAXIS
     Dosage: 300 MILLIGRAM
     Route: 065
     Dates: end: 20170509
  11. XARELTO [Concomitant]
     Active Substance: RIVAROXABAN
     Indication: PRODUCT USED FOR UNKNOWN INDICATION
     Route: 065
  12. WARFARIN [Concomitant]
     Active Substance: WARFARIN
     Indication: PRODUCT USED FOR UNKNOWN INDICATION
     Route: 065

REACTIONS (5)
  - Helicobacter infection [Recovered/Resolved]
  - Diarrhoea [Recovered/Resolved]
  - Neutropenia [Recovered/Resolved]
  - Neutropenia [Recovered/Resolved]
  - Rash [Recovered/Resolved]

NARRATIVE: CASE EVENT DATE: 2014
